FAERS Safety Report 20631919 (Version 1)
Quarter: 2022Q1

REPORT INFORMATION
  Report Type: Spontaneous
  Country: KR (occurrence: KR)
  Receive Date: 20220324
  Receipt Date: 20220324
  Transmission Date: 20220423
  Serious: Yes (Other)
  Sender: FDA-Public Use
  Company Number: DEX 2022-0052 (0)

PATIENT

DRUGS (3)
  1. DEXMEDETOMIDINE HYDROCHLORIDE [Suspect]
     Active Substance: DEXMEDETOMIDINE HYDROCHLORIDE
     Indication: Sedative therapy
     Dosage: INITIAL LOADING DOSE; OVER TEN MINUTES
     Route: 042
  2. DEXMEDETOMIDINE HYDROCHLORIDE [Suspect]
     Active Substance: DEXMEDETOMIDINE HYDROCHLORIDE
     Dosage: SUBSEQUENT MAINTENANCE RATE OF 0.2-0.6 UG/KG/HR UNTIL END OF SURGERY
     Route: 042
  3. EPINEPHRINE\LIDOCAINE [Concomitant]
     Active Substance: EPINEPHRINE\LIDOCAINE
     Indication: Nerve block
     Dosage: 16 ML + 16 ML
     Route: 065

REACTIONS (1)
  - Bradycardia [Recovered/Resolved]
